FAERS Safety Report 5431033-4 (Version None)
Quarter: 2007Q3

REPORT INFORMATION
  Report Type: 
  Country: None (occurrence: None)
  Receive Date: 20070830
  Receipt Date: 20070119
  Transmission Date: 20080115
  Serious: No
  Sender: FDA-Public Use
  Company Number: A0636298A

PATIENT
  Age: 43 Year
  Sex: Female

DRUGS (4)
  1. WELLBUTRIN XL [Suspect]
     Indication: DEPRESSION
     Dosage: 150MG PER DAY
     Route: 048
  2. SYNTHROID [Concomitant]
  3. TRAZODONE HCL [Concomitant]
  4. KLONOPIN [Concomitant]

REACTIONS (3)
  - DEPRESSION [None]
  - HEADACHE [None]
  - INSOMNIA [None]
